FAERS Safety Report 8412813-X (Version None)
Quarter: 2012Q2

REPORT INFORMATION
  Report Type: 
  Country: None (occurrence: None)
  Receive Date: 20120531
  Receipt Date: 20120531
  Transmission Date: 20120825
  Serious: No
  Sender: FDA-Public Use
  Company Number: None

PATIENT
  Age: 70 Year
  Sex: Female
  Weight: 61.2356 kg

DRUGS (2)
  1. CIPROFLOXACIN [Suspect]
     Dosage: 2PER DAY 2 PER DAY
     Dates: start: 20120516, end: 20120516
  2. CIPROFLOXACIN [Suspect]
     Dosage: 2PER DAY 2 PER DAY
     Dates: start: 20120514, end: 20120516

REACTIONS (1)
  - PARAESTHESIA [None]
